FAERS Safety Report 5374352-2 (Version None)
Quarter: 2007Q2

REPORT INFORMATION
  Report Type: 
  Country: None (occurrence: None)
  Receive Date: 20070629
  Receipt Date: 20070621
  Transmission Date: 20071010
  Serious: Yes (Hospitalization, Other)
  Sender: FDA-Public Use
  Company Number: PHHO2005JP16672

PATIENT
  Age: 78 Year
  Sex: Female

DRUGS (6)
  1. DIOVAN [Suspect]
     Indication: HYPERTENSION
     Dosage: 40 MG, QD
     Route: 048
     Dates: start: 20030729, end: 20060606
  2. MAINTATE [Concomitant]
     Indication: HYPERTROPHIC CARDIOMYOPATHY
     Dosage: UNK, UNK
     Dates: start: 19970729
  3. MEDET [Concomitant]
     Indication: DIABETES MELLITUS
     Dosage: UNK, UNK
     Dates: start: 20011002
  4. EPADEL [Concomitant]
     Indication: HYPERCHOLESTEROLAEMIA
     Dosage: UNK, UNK
     Dates: start: 20011002
  5. VASOLAN [Concomitant]
     Indication: CARDIOMYOPATHY
     Dosage: UNK, UNK
     Dates: start: 20041207
  6. LIVALO KOWA [Concomitant]
     Indication: HYPERCHOLESTEROLAEMIA
     Dosage: UNK, UNK
     Dates: start: 20041012

REACTIONS (3)
  - FACIAL PALSY [None]
  - FEMUR FRACTURE [None]
  - SURGERY [None]
